FAERS Safety Report 8346819-6 (Version None)
Quarter: 2012Q2

REPORT INFORMATION
  Report Type: 
  Country: None (occurrence: None)
  Receive Date: 20120509
  Receipt Date: 20120430
  Transmission Date: 20120825
  Serious: Yes (Other)
  Sender: FDA-Public Use
  Company Number: US-SANOFI-AVENTIS-2012SA020297

PATIENT
  Age: 58 Year
  Sex: Male
  Weight: 87.3 kg

DRUGS (12)
  1. WARFARIN SODIUM [Concomitant]
     Indication: ANTICOAGULANT THERAPY
  2. ANTIHYPERTENSIVES [Concomitant]
  3. HYDROCODONE BITARTRATE [Concomitant]
     Indication: PAIN
  4. LASIX [Concomitant]
  5. MULTAQ [Suspect]
     Route: 048
  6. PLAVIX [Concomitant]
     Indication: STENT PLACEMENT
  7. MULTAQ [Suspect]
     Indication: ATRIAL FIBRILLATION
     Route: 048
     Dates: start: 20120328
  8. SIMVASTATIN [Concomitant]
  9. MULTAQ [Suspect]
     Route: 048
  10. HYDROCHLOROTHIAZIDE [Concomitant]
     Indication: BLOOD PRESSURE
  11. MULTAQ [Suspect]
     Indication: ATRIAL FLUTTER
     Route: 048
     Dates: start: 20120328
  12. TOPROL-XL [Concomitant]
     Indication: BLOOD PRESSURE

REACTIONS (5)
  - DYSPNOEA [None]
  - PULMONARY HYPERTENSION [None]
  - CARDIAC FAILURE CONGESTIVE [None]
  - INSOMNIA [None]
  - APHASIA [None]
